FAERS Safety Report 13485825 (Version 5)
Quarter: 2018Q3

REPORT INFORMATION
  Report Type: Report from Study
  Country: CA (occurrence: CA)
  Receive Date: 20170426
  Receipt Date: 20180823
  Transmission Date: 20181010
  Serious: Yes (Other)
  Sender: FDA-Public Use
  Company Number: CA-GLAXOSMITHKLINE-CA2017GSK011273

PATIENT
  Sex: Female

DRUGS (7)
  1. MEPOLIZUMAB [Suspect]
     Active Substance: MEPOLIZUMAB
     Dosage: 100 MG, Z
     Route: 042
  2. MEPOLIZUMAB [Suspect]
     Active Substance: MEPOLIZUMAB
     Dosage: 100 MG, Z
     Route: 042
  3. MEPOLIZUMAB [Suspect]
     Active Substance: MEPOLIZUMAB
     Indication: ASTHMA
     Dosage: 100 MG, Z
     Route: 042
     Dates: start: 20161129
  4. MEPOLIZUMAB [Suspect]
     Active Substance: MEPOLIZUMAB
     Dosage: 100 MG, Z
     Route: 042
  5. MEPOLIZUMAB [Suspect]
     Active Substance: MEPOLIZUMAB
     Dosage: 100 MG, Z
     Route: 042
  6. MEPOLIZUMAB [Suspect]
     Active Substance: MEPOLIZUMAB
     Dosage: 100 MG, Z
     Route: 042
     Dates: start: 20171110
  7. MEPOLIZUMAB [Suspect]
     Active Substance: MEPOLIZUMAB
     Dosage: 100 MG, Z
     Route: 042
     Dates: start: 20171004

REACTIONS (16)
  - Breath sounds abnormal [Unknown]
  - Cough [Not Recovered/Not Resolved]
  - Pneumonia [Unknown]
  - Wheezing [Unknown]
  - Blood pressure increased [Unknown]
  - Pyrexia [Unknown]
  - Obstructive airways disorder [Not Recovered/Not Resolved]
  - Drug ineffective [Unknown]
  - Nasopharyngitis [Unknown]
  - Hypotension [Unknown]
  - Rales [Unknown]
  - Infection [Unknown]
  - Heart rate increased [Unknown]
  - Crepitations [Not Recovered/Not Resolved]
  - Dyspnoea [Not Recovered/Not Resolved]
  - Solar dermatitis [Unknown]
